FAERS Safety Report 14665611 (Version 1)
Quarter: 2018Q1

REPORT INFORMATION
  Report Type: Spontaneous
  Country: US (occurrence: US)
  Receive Date: 20180321
  Receipt Date: 20180321
  Transmission Date: 20180509
  Serious: Yes (Life-Threatening, Hospitalization)
  Sender: FDA-Public Use
  Company Number: US-TEVA-2018-US-873001

PATIENT
  Age: 24 Year
  Sex: Male

DRUGS (1)
  1. LOPERAMIDE [Suspect]
     Active Substance: LOPERAMIDE
     Dosage: UP TO 200 MG/DAY
     Route: 065

REACTIONS (2)
  - Drug abuse [Recovered/Resolved]
  - Torsade de pointes [Recovered/Resolved]
